FAERS Safety Report 7047126-4 (Version None)
Quarter: 2010Q4

REPORT INFORMATION
  Report Type: 
  Country: None (occurrence: None)
  Receive Date: 20101012
  Receipt Date: 20100928
  Transmission Date: 20110411
  Serious: Yes (Other)
  Sender: FDA-Public Use
  Company Number: BI-A-20070004

PATIENT
  Age: 58 Year
  Sex: Female

DRUGS (1)
  1. ESTROGEL [Suspect]
     Indication: HORMONE REPLACEMENT THERAPY
     Dosage: TOPICAL
     Route: 061
     Dates: start: 19980101, end: 20020101

REACTIONS (2)
  - APPLICATION SITE REACTION [None]
  - MALIGNANT MESENCHYMOMA [None]
